FAERS Safety Report 7323525-8 (Version None)
Quarter: 2011Q1

REPORT INFORMATION
  Report Type: 
  Country: None (occurrence: None)
  Receive Date: 20110301
  Receipt Date: 20110221
  Transmission Date: 20110831
  Serious: Yes (Other)
  Sender: FDA-Public Use
  Company Number: FR-KINGPHARMUSA00001-K201100185

PATIENT
  Age: 45 Year
  Sex: Male

DRUGS (1)
  1. ALTACE [Suspect]
     Dosage: 5 MG, UNK
     Route: 048

REACTIONS (2)
  - GINGIVAL HYPERPLASIA [None]
  - PERIODONTAL DISEASE [None]
